FAERS Safety Report 5063841-6 (Version None)
Quarter: 2006Q3

REPORT INFORMATION
  Report Type: 
  Country: None (occurrence: None)
  Receive Date: 20060726
  Receipt Date: 20060726
  Transmission Date: 20061208
  Serious: No
  Sender: FDA-Public Use
  Company Number: None

PATIENT
  Age: 77 Year
  Sex: Female
  Weight: 57.1532 kg

DRUGS (1)
  1. LEVAQUIN [Suspect]
     Indication: DIVERTICULITIS
     Dosage: 500MG EVERY 24 HOURS I.V.
     Route: 042
     Dates: start: 20060717, end: 20060718

REACTIONS (1)
  - ADVERSE DRUG REACTION [None]
